FAERS Safety Report 9093573 (Version 1)
Quarter: 2013Q1

REPORT INFORMATION
  Report Type: Spontaneous
  Country: DE (occurrence: DE)
  Receive Date: 20130201
  Receipt Date: 20130201
  Transmission Date: 20140127
  Serious: Yes (Other)
  Sender: FDA-Public Use
  Company Number: DE-AMGEN-DEUSP2013006608

PATIENT
  Age: 10 Year
  Sex: Female

DRUGS (2)
  1. ENBREL [Suspect]
     Indication: JUVENILE IDIOPATHIC ARTHRITIS
     Dosage: 25 MG, 2X/WEEK
  2. MTX                                /00113801/ [Concomitant]
     Dosage: UNK

REACTIONS (4)
  - Rash [Unknown]
  - Angina pectoris [Unknown]
  - Lung disorder [Unknown]
  - Abdominal pain [Unknown]
